FAERS Safety Report 9003543 (Version 2)
Quarter: 2013Q1

REPORT INFORMATION
  Report Type: Spontaneous
  Country: US (occurrence: US)
  Receive Date: 20130108
  Receipt Date: 20130211
  Transmission Date: 20140127
  Serious: No
  Sender: FDA-Public Use
  Company Number: US-ROXANE LABORATORIES, INC.-2013-RO-00012RO

PATIENT
  Sex: Female

DRUGS (3)
  1. HYDROMORPHONE [Suspect]
     Indication: OSTEOARTHRITIS
     Dosage: 20 MG
     Route: 048
  2. HYDROMORPHONE [Suspect]
     Indication: FIBROMYALGIA
  3. NEURONTIN [Concomitant]

REACTIONS (4)
  - Chills [Recovered/Resolved]
  - Tremor [Recovered/Resolved]
  - Drug ineffective [Recovered/Resolved]
  - Product quality issue [Recovered/Resolved]
